FAERS Safety Report 12733602 (Version 4)
Quarter: 2017Q2

REPORT INFORMATION
  Report Type: Spontaneous
  Country: JP (occurrence: JP)
  Receive Date: 20160912
  Receipt Date: 20170411
  Transmission Date: 20170830
  Serious: Yes (Hospitalization, Other)
  Sender: FDA-Public Use
  Company Number: JP-BRISTOL-MYERS SQUIBB COMPANY-BMS-2016-073027

PATIENT
  Age: 69 Year
  Sex: Female

DRUGS (1)
  1. OPDIVO [Suspect]
     Active Substance: NIVOLUMAB
     Indication: NON-SMALL CELL LUNG CANCER RECURRENT
     Dosage: 3 MG/KG, Q2WK
     Route: 041
     Dates: start: 20160715, end: 20160729

REACTIONS (3)
  - Myasthenia gravis [Recovering/Resolving]
  - Hypothyroidism [Unknown]
  - Myopathy [Recovering/Resolving]

NARRATIVE: CASE EVENT DATE: 20160815
